FAERS Safety Report 7536276-1 (Version None)
Quarter: 2011Q2

REPORT INFORMATION
  Report Type: 
  Country: None (occurrence: None)
  Receive Date: 20110602
  Receipt Date: 20110519
  Transmission Date: 20111010
  Serious: Yes (Life-Threatening)
  Sender: FDA-Public Use
  Company Number: 2011MA005731

PATIENT
  Age: 44 Year
  Sex: Female

DRUGS (2)
  1. LEVETIRACETAM [Suspect]
     Indication: EPILEPSY
     Dosage: 250 MG;BID;
     Dates: start: 20110209
  2. LAMOTRIGINE [Suspect]
     Dosage: 150 MG;  ;PO
     Route: 048
     Dates: start: 20100801, end: 20110101

REACTIONS (3)
  - OVERDOSE [None]
  - MOOD ALTERED [None]
  - SUICIDE ATTEMPT [None]
